FAERS Safety Report 18864591 (Version 2)
Quarter: 2021Q1

REPORT INFORMATION
  Report Type: Report from Study
  Country: JP (occurrence: JP)
  Receive Date: 20210209
  Receipt Date: 20210215
  Transmission Date: 20210420
  Serious: Yes (Life-Threatening, Hospitalization, Other)
  Sender: FDA-Public Use
  Company Number: JP-AUROBINDO-AUR-APL-2021-005586

PATIENT
  Age: 69 Year
  Sex: Male
  Weight: 59.4 kg

DRUGS (5)
  1. FOLOTYN [Suspect]
     Active Substance: PRALATREXATE
     Dosage: 20 MILLIGRAM/SQ. METER, DAILY
     Route: 042
     Dates: start: 20201112, end: 20201112
  2. VITAMIN B12 [Concomitant]
     Active Substance: CYANOCOBALAMIN
     Indication: PROPHYLAXIS
     Dosage: UNK
     Route: 030
     Dates: start: 20201006, end: 20201203
  3. FOLOTYN [Suspect]
     Active Substance: PRALATREXATE
     Indication: ANAPLASTIC LARGE-CELL LYMPHOMA
     Dosage: 30 MILLIGRAM/SQ. METER, DAILY
     Route: 042
     Dates: start: 20201015, end: 20201022
  4. FOLIC ACID. [Concomitant]
     Active Substance: FOLIC ACID
     Indication: PROPHYLAXIS
     Dosage: UNK
     Route: 048
     Dates: start: 20201006, end: 20201221
  5. FOLOTYN [Suspect]
     Active Substance: PRALATREXATE
     Dosage: 10 MILLIGRAM/SQ. METER, DAILY
     Route: 042
     Dates: start: 20201203, end: 20201203

REACTIONS (6)
  - Haemoglobin decreased [Not Recovered/Not Resolved]
  - Mucosal inflammation [Not Recovered/Not Resolved]
  - Stomatitis [Not Recovered/Not Resolved]
  - Ileus paralytic [Not Recovered/Not Resolved]
  - Platelet count decreased [Recovered/Resolved]
  - Neutrophil count decreased [Recovered/Resolved]

NARRATIVE: CASE EVENT DATE: 20201016
